FAERS Safety Report 5021738-1 (Version None)
Quarter: 2006Q2

REPORT INFORMATION
  Report Type: 
  Country: None (occurrence: None)
  Receive Date: 20060605
  Receipt Date: 20060518
  Transmission Date: 20061013
  Serious: Yes (Other)
  Sender: FDA-Public Use
  Company Number: 2006-DE-02588GD

PATIENT
  Age: 60 Year
  Sex: Female

DRUGS (4)
  1. PREDNISONE TAB [Suspect]
     Indication: IMMUNOSUPPRESSANT DRUG THERAPY
  2. TACROLIMUS (TACROLIMUS) [Suspect]
     Indication: IMMUNOSUPPRESSANT DRUG THERAPY
  3. MYCOPHENOLATE MOFETIL [Suspect]
     Indication: IMMUNOSUPPRESSANT DRUG THERAPY
  4. DAPSONE [Concomitant]

REACTIONS (12)
  - ABDOMINAL DISTENSION [None]
  - EARLY SATIETY [None]
  - EPSTEIN-BARR VIRUS TEST POSITIVE [None]
  - HYPERBILIRUBINAEMIA [None]
  - LIVER PALPABLE SUBCOSTAL [None]
  - LYMPHOCYTE COUNT DECREASED [None]
  - NIGHT SWEATS [None]
  - PORTAL HYPERTENSION [None]
  - PULMONARY VENO-OCCLUSIVE DISEASE [None]
  - PYREXIA [None]
  - WEIGHT DECREASED [None]
  - WEIGHT INCREASED [None]
